FAERS Safety Report 21242107 (Version 1)
Quarter: 2022Q3

REPORT INFORMATION
  Report Type: Spontaneous
  Country: None (occurrence: US)
  Receive Date: 20220823
  Receipt Date: 20220823
  Transmission Date: 20221027
  Serious: No
  Sender: FDA-Public Use
  Company Number: US-Ajanta Pharma USA Inc.-2132135

PATIENT
  Age: 72 Year
  Sex: Female
  Weight: 65 kg

DRUGS (6)
  1. CHOLESTYRAMINE [Suspect]
     Active Substance: CHOLESTYRAMINE
     Indication: Irritable bowel syndrome
     Dates: start: 20220605, end: 20220605
  2. METOPROLOL [Concomitant]
     Active Substance: METOPROLOL
  3. LOMOTIL [Concomitant]
     Active Substance: ATROPINE SULFATE\DIPHENOXYLATE HYDROCHLORIDE
  4. PRAVASTATIN [Concomitant]
     Active Substance: PRAVASTATIN
  5. OMEPRAZOLE [Concomitant]
     Active Substance: OMEPRAZOLE
  6. VITAMINS [Concomitant]
     Active Substance: VITAMINS

REACTIONS (7)
  - Foreign body in throat [Recovered/Resolved]
  - Oropharyngeal discomfort [Recovered/Resolved]
  - Dyspnoea [Recovered/Resolved]
  - Off label use [Recovered/Resolved]
  - Product use complaint [Recovered/Resolved]
  - Product physical consistency issue [Recovered/Resolved]
  - Product substitution issue [Recovered/Resolved]

NARRATIVE: CASE EVENT DATE: 20220605
